FAERS Safety Report 5015117-0 (Version None)
Quarter: 2006Q2

REPORT INFORMATION
  Report Type: 
  Country: None (occurrence: None)
  Receive Date: 20060530
  Receipt Date: 20020214
  Transmission Date: 20061013
  Serious: Yes (Disabling)
  Sender: FDA-Public Use
  Company Number: GBR-2002-0000032

PATIENT
  Sex: Female

DRUGS (6)
  1. DIHYDROCODEINE BITARTRATE INJ [Suspect]
     Indication: PAIN
     Dosage: 30 MG, BID, ORAL
     Route: 048
     Dates: start: 20020123, end: 20020125
  2. FLUOXETINE [Concomitant]
  3. IMDUR [Concomitant]
  4. ATENOLOL [Concomitant]
  5. PRAVASTATIN SODIUM [Concomitant]
  6. RAMIPRIL [Concomitant]

REACTIONS (1)
  - ANGINA PECTORIS [None]
